FAERS Safety Report 20641999 (Version 5)
Quarter: 2022Q2

REPORT INFORMATION
  Report Type: Report from Study
  Country: US (occurrence: US)
  Receive Date: 20220328
  Receipt Date: 20220526
  Transmission Date: 20220721
  Serious: Yes (Other)
  Sender: FDA-Public Use
  Company Number: US-BIOGEN-2022BI01107604

PATIENT
  Age: 47 Year
  Sex: Female
  Weight: 76.272 kg

DRUGS (11)
  1. TYSABRI [Suspect]
     Active Substance: NATALIZUMAB
     Indication: Multiple sclerosis
     Route: 042
     Dates: start: 20080715, end: 20220106
  2. TYSABRI [Suspect]
     Active Substance: NATALIZUMAB
     Route: 042
     Dates: start: 20191018, end: 20220302
  3. ALVESCO [Concomitant]
     Active Substance: CICLESONIDE
     Indication: Respiratory disorder
     Dosage: INHALE 1 PUFF BY MOUTH EVERY MORNING AND EVENING FOR PREVENTION OF CONTROL OF BREATHING PROBLEMS
     Route: 065
     Dates: start: 20211226, end: 20211226
  4. CODEINE [Concomitant]
     Active Substance: CODEINE
     Indication: Cough
     Route: 065
  5. TESSALON [Concomitant]
     Active Substance: BENZONATATE
     Indication: Cough
     Dosage: 1 TO 2 CAPSULES EVERY 8 HOURS AS NEEDED FOR COUGH, DO NOT TAKE MORE THAN 6 CAPSULES IN 24HOURS
     Route: 048
     Dates: start: 20211222, end: 20220128
  6. ATARAX [Concomitant]
     Active Substance: HYDROXYZINE HYDROCHLORIDE
     Indication: Product used for unknown indication
     Dosage: TAKE 1 TO 2 TABLETS BY MOUTH DAILY AT BEDTIME AS NEEDED
     Route: 048
     Dates: start: 20211208
  7. VITAMIN D3 [Concomitant]
     Active Substance: CHOLECALCIFEROL
     Indication: Product used for unknown indication
     Route: 048
  8. CYANOCOBALAMIN [Concomitant]
     Active Substance: CYANOCOBALAMIN
     Indication: Product used for unknown indication
     Route: 048
     Dates: start: 20191009, end: 20220302
  9. GUAIFENESIN AC [Concomitant]
     Active Substance: CODEINE PHOSPHATE\GUAIFENESIN
     Indication: Cough
     Dosage: TAKE 5 TO 10ML EVERY 6HOURS AS NEEDED FOR COUGH
     Route: 048
     Dates: start: 20220124
  10. VITAMIN D [Concomitant]
     Active Substance: VITAMIN D NOS
     Indication: Product used for unknown indication
     Route: 065
  11. VITAMIN B12 [Concomitant]
     Active Substance: CYANOCOBALAMIN
     Indication: Product used for unknown indication
     Route: 065

REACTIONS (5)
  - Lung adenocarcinoma stage IV [Not Recovered/Not Resolved]
  - Malignant melanoma [Unknown]
  - Cough [Unknown]
  - Benign neoplasm of thyroid gland [Unknown]
  - Prescribed underdose [Unknown]

NARRATIVE: CASE EVENT DATE: 20131201
